FAERS Safety Report 5279274-3 (Version None)
Quarter: 2007Q1

REPORT INFORMATION
  Report Type: 
  Country: None (occurrence: None)
  Receive Date: 20070328
  Receipt Date: 20060619
  Transmission Date: 20070707
  Serious: No
  Sender: FDA-Public Use
  Company Number: US-AMGEN-US168836

PATIENT
  Sex: Female
  Weight: 67.6 kg

DRUGS (6)
  1. NEULASTA [Suspect]
     Indication: CHEMOTHERAPY
     Route: 058
     Dates: start: 20051209
  2. ADRIAMYCIN PFS [Concomitant]
     Route: 065
     Dates: start: 20051208, end: 20060119
  3. CYTOXAN [Concomitant]
     Route: 065
     Dates: start: 20051208, end: 20060119
  4. DECADRON [Concomitant]
     Route: 065
     Dates: start: 20051208, end: 20060216
  5. ZOFRAN [Concomitant]
     Route: 065
     Dates: start: 20051208, end: 20060216
  6. TAXOL [Concomitant]
     Route: 065
     Dates: start: 20060202, end: 20060216

REACTIONS (2)
  - COUGH [None]
  - INTERSTITIAL LUNG DISEASE [None]
